FAERS Safety Report 6333664-6 (Version None)
Quarter: 2009Q3

REPORT INFORMATION
  Report Type: 
  Country: None (occurrence: None)
  Receive Date: 20090829
  Receipt Date: 20090522
  Transmission Date: 20100115
  Serious: No
  Sender: FDA-Public Use
  Company Number: US-ABBOTT-09P-163-0575219-00

PATIENT
  Sex: Male
  Weight: 89.892 kg

DRUGS (2)
  1. SIMCOR [Suspect]
     Indication: BLOOD CHOLESTEROL INCREASED
     Dosage: 500/20
     Dates: start: 20090501
  2. DARVOCET [Concomitant]
     Indication: PAIN
     Dosage: N100

REACTIONS (1)
  - FLUSHING [None]
